FAERS Safety Report 8328456-2 (Version None)
Quarter: 2012Q2

REPORT INFORMATION
  Report Type: 
  Country: None (occurrence: None)
  Receive Date: 20120502
  Receipt Date: 20120502
  Transmission Date: 20120825
  Serious: Yes (Other)
  Sender: FDA-Public Use
  Company Number: None

PATIENT
  Age: 21 Year
  Sex: Female
  Weight: 56.699 kg

DRUGS (1)
  1. SINGULAIR [Suspect]
     Indication: ASTHMA
     Dosage: |DOSAGETEXT: 10 MG TABLET||STRENGTH: 10 MG||FREQ: 1 PER DAY||ROUTE: ORAL|
     Route: 048
     Dates: start: 19990919, end: 20041218

REACTIONS (2)
  - MENTAL DISORDER [None]
  - SUICIDAL IDEATION [None]
